FAERS Safety Report 26047501 (Version 1)
Quarter: 2025Q4

REPORT INFORMATION
  Report Type: Spontaneous
  Country: EU (occurrence: EU)
  Receive Date: 20251114
  Receipt Date: 20251114
  Transmission Date: 20260118
  Serious: Yes (Life-Threatening, Hospitalization, Other)
  Sender: SANOFI AVENTIS
  Company Number: None

PATIENT
  Age: 53 Year
  Sex: Male

DRUGS (6)
  1. PREDNISONE [Suspect]
     Active Substance: PREDNISONE
     Indication: Rheumatic disorder
     Dosage: 10 MG, QD
     Route: 048
  2. LOVENOX [Suspect]
     Active Substance: ENOXAPARIN SODIUM
     Indication: Product used for unknown indication
     Dosage: 10000 IU
     Route: 058
     Dates: start: 20250606, end: 20250906
  3. LOVENOX [Suspect]
     Active Substance: ENOXAPARIN SODIUM
     Dosage: PROPHYLACTIC DOSE OF 4,000 IU SUBCUTANEOUSLY ONCE DAILY UNTIL OCTOBER 6, 2025
     Route: 058
     Dates: end: 20251006
  4. METHOTREXATE [Suspect]
     Active Substance: METHOTREXATE
     Indication: Rheumatic disorder
     Dosage: 1 DF, QW
     Route: 058
  5. KARDEGIC [Suspect]
     Active Substance: ASPIRIN DL-LYSINE
     Indication: Arterial bypass operation
     Dosage: 75 MG, QD
     Route: 065
  6. ADALIMUMAB [Suspect]
     Active Substance: ADALIMUMAB
     Indication: Rheumatic disorder
     Dosage: 1 DF, Q15D
     Route: 058
     Dates: start: 202508

REACTIONS (13)
  - Cardiac arrest [Recovered/Resolved]
  - Shock haemorrhagic [Recovered/Resolved]
  - Post procedural infection [Recovering/Resolving]
  - Infection in an immunocompromised host [Recovering/Resolving]
  - Peripheral ischaemia [Unknown]
  - Pain in extremity [Unknown]
  - Arterial rupture [Unknown]
  - Vasoplegia syndrome [Unknown]
  - Bacteraemia [Unknown]
  - Wound dehiscence [Unknown]
  - Asthenia [Unknown]
  - Drug intolerance [Unknown]
  - Bacteroides test positive [Unknown]

NARRATIVE: CASE EVENT DATE: 20250901
